FAERS Safety Report 8919252 (Version 1)
Quarter: 2012Q4

REPORT INFORMATION
  Report Type: 
  Country: IT (occurrence: IT)
  Receive Date: 20121121
  Receipt Date: 20121121
  Transmission Date: 20130627
  Serious: Yes (Other)
  Sender: FDA-Public Use
  Company Number: IT-PFIZER INC-2012282848

PATIENT
  Age: 64 Year
  Sex: Female

DRUGS (4)
  1. ARACYTINE [Suspect]
     Indication: NON-HODGKIN^S LYMPHOMA
     Dosage: UNK
  2. VINCRISTINE SULFATE [Suspect]
     Indication: NON-HODGKIN^S LYMPHOMA
     Dosage: UNK
  3. METHOTREXATE [Suspect]
     Indication: NON-HODGKIN^S LYMPHOMA
     Dosage: UNK
  4. BLEOMYCIN [Suspect]
     Indication: NON-HODGKIN^S LYMPHOMA
     Dosage: UNK

REACTIONS (5)
  - Immunosuppression [Unknown]
  - Arthritis bacterial [Recovered/Resolved]
  - Arthralgia [Recovered/Resolved]
  - White blood cell count decreased [Unknown]
  - Haemoglobin decreased [Unknown]
